FAERS Safety Report 7981301-7 (Version None)
Quarter: 2011Q4

REPORT INFORMATION
  Report Type: 
  Country: None (occurrence: None)
  Receive Date: 20111215
  Receipt Date: 20111212
  Transmission Date: 20120403
  Serious: No
  Sender: FDA-Public Use
  Company Number: US-PFIZER INC-2011302355

PATIENT
  Sex: Female

DRUGS (2)
  1. METOPROLOL TARTRATE [Suspect]
  2. ALPRAZOLAM [Suspect]
     Dosage: UNK

REACTIONS (3)
  - DRUG INEFFECTIVE [None]
  - MIGRAINE [None]
  - GASTROOESOPHAGEAL REFLUX DISEASE [None]
